FAERS Safety Report 7283733 (Version 4)
Quarter: 2013Q4

REPORT INFORMATION
  Report Type: Spontaneous
  Country: US (occurrence: US)
  Receive Date: 20100218
  Receipt Date: 20131127
  Transmission Date: 20140711
  Serious: Yes (Other)
  Sender: FDA-Public Use
  Company Number: US-BAYER-201013943NA

PATIENT
  Age: 29 Year
  Sex: Female
  Weight: 63.64 kg

DRUGS (5)
  1. YAZ [Suspect]
     Route: 048
     Dates: start: 2003, end: 2009
  2. YASMIN [Suspect]
     Route: 048
     Dates: start: 20040607, end: 20081027
  3. OCELLA [Suspect]
     Route: 048
     Dates: start: 20081118, end: 20090603
  4. EFFEXOR XR [Concomitant]
     Dosage: 75 MG, UNK
     Route: 048
     Dates: start: 200502, end: 201004
  5. PREVACID [Concomitant]
     Dosage: 30 MG, UNK
     Route: 048
     Dates: start: 200807

REACTIONS (7)
  - Cholecystectomy [Unknown]
  - Uterine haemorrhage [Unknown]
  - Vaginal haemorrhage [Unknown]
  - Hysterectomy [Unknown]
  - Palpitations [Unknown]
  - Cholecystitis chronic [None]
  - Biliary dyskinesia [None]
